FAERS Safety Report 8912090 (Version 2)
Quarter: 2013Q1

REPORT INFORMATION
  Report Type: Spontaneous
  Country: US (occurrence: None)
  Receive Date: 20121113
  Receipt Date: 20121219
  Transmission Date: 20140127
  Serious: Yes (Hospitalization)
  Sender: FDA-Public Use
  Company Number: 2012RD000049

PATIENT
  Age: 16 Year
  Sex: Female

DRUGS (3)
  1. ALBUTEROL SULFATE [Suspect]
     Indication: MECHANICAL VENTILATION
     Route: 055
     Dates: start: 20121023, end: 20121025
  2. ACETYLCYSTEINE [Concomitant]
  3. SODIUM CHLORIDE [Concomitant]

REACTIONS (1)
  - Post procedural haemorrhage [None]
